FAERS Safety Report 10236660 (Version 1)
Quarter: 2014Q2

REPORT INFORMATION
  Report Type: Spontaneous
  Country: IT (occurrence: IT)
  Receive Date: 20140613
  Receipt Date: 20140613
  Transmission Date: 20141212
  Serious: Yes (Hospitalization)
  Sender: FDA-Public Use
  Company Number: IT-PFIZER INC-2014159548

PATIENT
  Age: 74 Year
  Sex: Female

DRUGS (6)
  1. QUARK [Suspect]
     Indication: ESSENTIAL HYPERTENSION
     Dosage: UNK
     Route: 048
  2. DIURESIX [Interacting]
     Indication: RENAL FAILURE CHRONIC
     Dosage: UNK
     Route: 048
  3. DILATREND [Interacting]
     Indication: ESSENTIAL HYPERTENSION
     Dosage: UNK
     Route: 048
  4. CARDURA [Concomitant]
     Indication: ESSENTIAL HYPERTENSION
     Dosage: UNK
  5. ZYLORIC [Concomitant]
     Indication: HYPERURICAEMIA
     Dosage: UNK
  6. ENTACT [Concomitant]
     Indication: ANXIETY
     Dosage: UNK

REACTIONS (2)
  - Iron deficiency anaemia [Not Recovered/Not Resolved]
  - Drug interaction [Not Recovered/Not Resolved]
